FAERS Safety Report 7569012-3 (Version None)
Quarter: 2011Q2

REPORT INFORMATION
  Report Type: 
  Country: None (occurrence: None)
  Receive Date: 20110623
  Receipt Date: 20110614
  Transmission Date: 20111010
  Serious: Yes (Hospitalization, Disabling)
  Sender: FDA-Public Use
  Company Number: BR-ASTRAZENECA-2011SE36391

PATIENT
  Age: 87 Year
  Sex: Female
  Weight: 90 kg

DRUGS (6)
  1. METOPROLOL SUCCINATE [Suspect]
     Route: 048
     Dates: start: 20080101
  2. SOMALGIN CARDIO [Concomitant]
     Route: 048
     Dates: start: 20080101
  3. METOPROLOL SUCCINATE [Suspect]
     Indication: HYPERTENSION
     Route: 048
     Dates: start: 20080101
  4. CRESTOR [Suspect]
     Indication: HYPERCHOLESTEROLAEMIA
     Route: 048
  5. ANCORON [Concomitant]
     Route: 048
     Dates: start: 20080101
  6. CLOPIDOGREL [Concomitant]
     Route: 048
     Dates: start: 20080101

REACTIONS (2)
  - WEIGHT DECREASED [None]
  - CEREBROVASCULAR ACCIDENT [None]
